FAERS Safety Report 5537047-8 (Version None)
Quarter: 2007Q4

REPORT INFORMATION
  Report Type: 
  Country: None (occurrence: None)
  Receive Date: 20071207
  Receipt Date: 20071129
  Transmission Date: 20080405
  Serious: Yes (Other)
  Sender: FDA-Public Use
  Company Number: US-JNJFOC-20071110808

PATIENT
  Age: 38 Year
  Sex: Female
  Weight: 73.03 kg

DRUGS (2)
  1. REMICADE [Suspect]
     Dosage: 220 MG
     Route: 041
  2. REMICADE [Suspect]
     Indication: PSORIATIC ARTHROPATHY
     Dosage: 220 MG
     Route: 041

REACTIONS (1)
  - VISUAL DISTURBANCE [None]
